FAERS Safety Report 9485617 (Version 2)
Quarter: 2013Q3

REPORT INFORMATION
  Report Type: Spontaneous
  Country: US (occurrence: US)
  Receive Date: 20130829
  Receipt Date: 20130910
  Transmission Date: 20140515
  Serious: Yes (Death, Life-Threatening, Disabling)
  Sender: FDA-Public Use
  Company Number: US-009507513-1308USA011998

PATIENT
  Age: 32 Year
  Sex: Male

DRUGS (9)
  1. ISENTRESS [Suspect]
     Indication: HIV INFECTION
     Dosage: 400 MG, BID
     Route: 048
     Dates: start: 20130524, end: 20130603
  2. AZITHROMYCIN [Concomitant]
     Dosage: 1200 MG, QW
  3. BACTRIM DS [Concomitant]
     Dosage: TWICE A WEEK
  4. LOMOTIL (LOPERAMIDE HYDROCHLORIDE) [Concomitant]
     Dosage: 4 TIMES A DAY AS NEEDED
  5. POTASSIUM (UNSPECIFIED) [Concomitant]
     Dosage: 20 MEQ, TID
  6. PRILOSEC [Concomitant]
     Dosage: 20 MG, QD
     Route: 048
  7. PHENERGAN (PROMETHAZINE HYDROCHLORIDE) [Concomitant]
     Dosage: 1/2-1 EVERY 4-6 HOURS AS NEEDED
  8. ERGOCALCIFEROL [Concomitant]
     Dosage: 500000 UNITS TWICE A WEEK
  9. ZOFRAN [Concomitant]
     Dosage: 4MG 1-2 EVERY 6 HOURS AS NEEDED

REACTIONS (1)
  - Death [Fatal]
